FAERS Safety Report 19509982 (Version 1)
Quarter: 2021Q3

REPORT INFORMATION
  Report Type: Spontaneous
  Country: US (occurrence: US)
  Receive Date: 20210708
  Receipt Date: 20210708
  Transmission Date: 20211014
  Serious: No
  Sender: FDA-Public Use
  Company Number: US-INTRA-CELLULAR THERAPIES, INC.-2021ICT00184

PATIENT
  Age: 63 Year
  Sex: Male
  Weight: 120.18 kg

DRUGS (11)
  1. TOPAMAX [Concomitant]
     Active Substance: TOPIRAMATE
  2. CAPLYTA [Suspect]
     Active Substance: LUMATEPERONE
     Dosage: 42 MG, EVERY OTHER DAY
     Route: 048
     Dates: start: 20210218, end: 20210323
  3. ZEMBRACE SYMTOUCH [Concomitant]
     Active Substance: SUMATRIPTAN SUCCINATE
  4. CAPLYTA [Suspect]
     Active Substance: LUMATEPERONE
     Indication: BIPOLAR DISORDER
     Dosage: 42 MG, 1X/DAY
     Route: 048
     Dates: start: 202012, end: 20210210
  5. CAPLYTA [Suspect]
     Active Substance: LUMATEPERONE
     Dosage: OPENING THE CAPSULES TO TAKE A FEWER DOSE
     Route: 048
     Dates: start: 2021, end: 2021
  6. NORTRIPTYLINE [Concomitant]
     Active Substance: NORTRIPTYLINE
  7. RIZATRIPTAN. [Concomitant]
     Active Substance: RIZATRIPTAN
  8. KLONOPIN [Concomitant]
     Active Substance: CLONAZEPAM
  9. NAPROXEN. [Concomitant]
     Active Substance: NAPROXEN
  10. FLONASE [Concomitant]
     Active Substance: FLUTICASONE PROPIONATE
  11. OMEGA 3 [Concomitant]
     Active Substance: OMEGA-3 FATTY ACIDS

REACTIONS (5)
  - Headache [Recovered/Resolved]
  - Tinnitus [Not Recovered/Not Resolved]
  - Off label use [Recovered/Resolved]
  - Migraine [Recovered/Resolved]
  - Intentional product misuse [Recovered/Resolved]

NARRATIVE: CASE EVENT DATE: 202012
